FAERS Safety Report 18474989 (Version 3)
Quarter: 2021Q2

REPORT INFORMATION
  Report Type: Spontaneous
  Country: CN (occurrence: CN)
  Receive Date: 20201106
  Receipt Date: 20210407
  Transmission Date: 20210717
  Serious: Yes (Hospitalization, Other)
  Sender: FDA-Public Use
  Company Number: CN-SA-2020SA311544

PATIENT
  Age: 74 Year
  Sex: Male
  Weight: 71 kg

DRUGS (24)
  1. ATORVASTATIN [Interacting]
     Active Substance: ATORVASTATIN
     Indication: PRODUCT USED FOR UNKNOWN INDICATION
     Dosage: 20 MG, QN
     Dates: end: 20190318
  2. MOXIFLOXACIN HYDROCHLORIDE. [Interacting]
     Active Substance: MOXIFLOXACIN HYDROCHLORIDE
     Indication: ANTI-INFECTIVE THERAPY
     Dosage: 0.4 G, QD
  3. TORASEMIDE [Interacting]
     Active Substance: TORSEMIDE
     Dosage: 20 MG, BID
     Dates: start: 20190318
  4. DOPAMINE HYDROCHLORIDE. [Interacting]
     Active Substance: DOPAMINE HYDROCHLORIDE
     Indication: PRODUCT USED FOR UNKNOWN INDICATION
     Dosage: 80 MG, QN
     Dates: start: 20190310, end: 20190322
  5. LATAMOXEF [Interacting]
     Active Substance: LATAMOXEF
     Indication: ANTI-INFECTIVE THERAPY
     Dosage: 2 G, Q12H
     Dates: start: 20190310, end: 20190313
  6. TORASEMIDE [Interacting]
     Active Substance: TORSEMIDE
     Indication: POLYURIA
     Dosage: 10 MG, Q12H
  7. SACUBITRIL;VALSARTAN [Concomitant]
     Active Substance: SACUBITRIL\VALSARTAN
     Dosage: 50 MG, Q12H
  8. VORICONAZOLE. [Interacting]
     Active Substance: VORICONAZOLE
     Indication: PRODUCT USED FOR UNKNOWN INDICATION
     Dosage: 200 MG, Q12H
     Route: 048
     Dates: end: 20190327
  9. TORASEMIDE [Interacting]
     Active Substance: TORSEMIDE
     Dosage: 20 MG, Q6H
     Dates: start: 20190321
  10. GLUCOSE [Concomitant]
     Active Substance: DEXTROSE
     Dosage: 1000 ML
     Dates: start: 20190318
  11. TORASEMIDE [Interacting]
     Active Substance: TORSEMIDE
     Dosage: 20 MG, PRN
  12. TORASEMIDE [Interacting]
     Active Substance: TORSEMIDE
     Dosage: 20 MG, QD
     Dates: start: 20190327
  13. DOXOFYLLINE [Concomitant]
     Active Substance: DOXOFYLLINE
     Dosage: 0.2 G, Q12H
  14. ALBUMIN [Concomitant]
     Active Substance: ALBUMIN HUMAN
     Dosage: 10 G, QD
     Dates: start: 20190312
  15. PLAVIX [Suspect]
     Active Substance: CLOPIDOGREL BISULFATE
     Indication: PRODUCT USED FOR UNKNOWN INDICATION
     Dosage: 75 MG, QD
     Dates: start: 20190310, end: 20190312
  16. MILRINONE [Concomitant]
     Active Substance: MILRINONE
     Dosage: 10 MG, Q12H
  17. PIPERACILLIN;SULBACTAM [Concomitant]
     Active Substance: PIPERACILLIN\SULBACTAM
     Indication: INFECTION
     Dosage: 4.5 G, Q12H
  18. MUCOSOLVAN [Interacting]
     Active Substance: AMBROXOL HYDROCHLORIDE
     Indication: ANTI-INFECTIVE THERAPY
     Dosage: 90 MG, Q12H
     Dates: start: 20190310
  19. SPIRONOLACTONE. [Concomitant]
     Active Substance: SPIRONOLACTONE
  20. TORASEMIDE [Interacting]
     Active Substance: TORSEMIDE
     Dosage: 20 MG, QD
     Dates: start: 20190315
  21. DIGOXIN. [Concomitant]
     Active Substance: DIGOXIN
     Dosage: 0.125 MG, QD
  22. WARFARIN SODIUM. [Interacting]
     Active Substance: WARFARIN SODIUM
     Indication: ANTICOAGULANT THERAPY
     Dosage: 1.875 MG, QN
     Dates: start: 20190310, end: 20190312
  23. FUROSEMIDE. [Interacting]
     Active Substance: FUROSEMIDE
     Indication: PRODUCT USED FOR UNKNOWN INDICATION
     Dosage: 40 MG, Q12H
  24. VITAMIN K1 [Concomitant]
     Active Substance: PHYTONADIONE
     Dosage: UNK
     Route: 030
     Dates: start: 20190312

REACTIONS (7)
  - Blood creatine phosphokinase increased [Recovered/Resolved]
  - Rhabdomyolysis [Recovered/Resolved]
  - Myalgia [Recovered/Resolved]
  - International normalised ratio increased [Unknown]
  - Drug interaction [Recovered/Resolved]
  - Acute kidney injury [Unknown]
  - Muscle discomfort [Recovered/Resolved]

NARRATIVE: CASE EVENT DATE: 20190318
